FAERS Safety Report 4806780-5 (Version None)
Quarter: 2005Q4

REPORT INFORMATION
  Report Type: 
  Country: None (occurrence: None)
  Receive Date: 20051019
  Receipt Date: 20051019
  Transmission Date: 20060501
  Serious: Yes (Life-Threatening)
  Sender: FDA-Public Use
  Company Number: None

PATIENT
  Sex: Female
  Weight: 61.2356 kg

DRUGS (2)
  1. LUNESTA [Suspect]
     Indication: INSOMNIA
     Dosage: 2 MG NIGHTLY (ALSO SEE ITEM B5)
     Dates: start: 20050525, end: 20050830
  2. WELLBUTRIN SR [Concomitant]

REACTIONS (15)
  - ANOREXIA [None]
  - AUTOMATISM [None]
  - COMPULSIONS [None]
  - CRYING [None]
  - DEPRESSION [None]
  - DISSOCIATION [None]
  - DYSGEUSIA [None]
  - FEELING ABNORMAL [None]
  - HALLUCINATION, VISUAL [None]
  - HEADACHE [None]
  - INCORRECT DOSE ADMINISTERED [None]
  - MULTIPLE DRUG OVERDOSE [None]
  - SOMNOLENCE [None]
  - SUICIDAL IDEATION [None]
  - SUICIDE ATTEMPT [None]
